FAERS Safety Report 24169412 (Version 1)
Quarter: 2024Q3

REPORT INFORMATION
  Report Type: Spontaneous
  Country: US (occurrence: US)
  Receive Date: 20240802
  Receipt Date: 20240802
  Transmission Date: 20241017
  Serious: Yes (Death)
  Sender: NOVARTIS
  Company Number: US-002147023-NVSC2024US157986

PATIENT
  Age: 13 Year
  Sex: Male

DRUGS (1)
  1. KYMRIAH [Suspect]
     Active Substance: TISAGENLECLEUCEL
     Indication: Acute lymphocytic leukaemia
     Dosage: UNK, ONCE/SINGLE, 1.5E8 CAR POSITIVE VIABLE T-CELLS
     Route: 042
     Dates: start: 20240724, end: 20240724

REACTIONS (1)
  - Death [Fatal]
